FAERS Safety Report 22646721 (Version 1)
Quarter: 2023Q2

REPORT INFORMATION
  Report Type: Spontaneous
  Country: US (occurrence: US)
  Receive Date: 20230627
  Receipt Date: 20230627
  Transmission Date: 20230722
  Serious: No
  Sender: FDA-Public Use
  Company Number: US-ALXN-A202308364

PATIENT
  Age: 4 Year
  Sex: Female

DRUGS (1)
  1. STRENSIQ [Suspect]
     Active Substance: ASFOTASE ALFA
     Indication: Hypophosphatasia
     Dosage: UNK, SIX DAYS A WEEK
     Route: 065

REACTIONS (4)
  - Upper respiratory tract infection [Unknown]
  - Abdominal pain [Unknown]
  - Pallor [Unknown]
  - Cold sweat [Unknown]
